FAERS Safety Report 7899023-X (Version None)
Quarter: 2011Q4

REPORT INFORMATION
  Report Type: 
  Country: None (occurrence: None)
  Receive Date: 20111107
  Receipt Date: 20111103
  Transmission Date: 20120403
  Serious: Yes (Other)
  Sender: FDA-Public Use
  Company Number: AT-ROCHE-1009462

PATIENT
  Age: 60 Year
  Sex: Female

DRUGS (10)
  1. AVASTIN [Suspect]
     Indication: GLIOBLASTOMA
     Route: 042
     Dates: start: 20110519, end: 20111020
  2. ALPRAZOLAM [Concomitant]
  3. IRINOTECAN HCL [Suspect]
     Indication: GLIOBLASTOMA
     Route: 065
  4. KEPPRA [Concomitant]
  5. TRAZODONE HCL [Concomitant]
  6. LEVOTHYROXINE SODIUM [Concomitant]
  7. LOVENOX [Concomitant]
  8. ZANTAC [Concomitant]
  9. FORTECORTIN [Concomitant]
  10. AMLODIPINE [Concomitant]

REACTIONS (2)
  - LYMPHOPENIA [None]
  - DISEASE PROGRESSION [None]
